FAERS Safety Report 9233637 (Version 1)
Quarter: 2013Q1

REPORT INFORMATION
  Report Type: Spontaneous
  Country: US (occurrence: None)
  Receive Date: 20121031
  Receipt Date: 20121031
  Transmission Date: 20140127
  Serious: No
  Sender: FDA-Public Use
  Company Number: PHEH2012US014522

PATIENT
  Age: 48 Year
  Sex: Female

DRUGS (2)
  1. GILENYA [Suspect]
     Route: 048
  2. FIBERCON (POLYCARBOPHIL CALCIUM) [Concomitant]

REACTIONS (2)
  - Platelet count decreased [None]
  - Vomiting [None]
